FAERS Safety Report 8529332-2 (Version None)
Quarter: 2012Q3

REPORT INFORMATION
  Report Type: 
  Country: None (occurrence: None)
  Receive Date: 20120717
  Receipt Date: 20120717
  Transmission Date: 20120928
  Serious: No
  Sender: FDA-Public Use
  Company Number: None

PATIENT
  Age: 55 Year
  Sex: Female
  Weight: 58.0604 kg

DRUGS (1)
  1. NEUTROGENA HELIOPLEX 30 NEUTROGENA [Suspect]
     Indication: PROPHYLAXIS AGAINST SOLAR RADIATION
     Dates: start: 20060601, end: 20060610

REACTIONS (4)
  - RASH GENERALISED [None]
  - ERYTHEMA [None]
  - RASH PRURITIC [None]
  - DERMATITIS ALLERGIC [None]
